FAERS Safety Report 18805722 (Version 1)
Quarter: 2021Q1

REPORT INFORMATION
  Report Type: Spontaneous
  Country: NZ (occurrence: NZ)
  Receive Date: 20210128
  Receipt Date: 20210128
  Transmission Date: 20210419
  Serious: Yes (Other)
  Sender: FDA-Public Use
  Company Number: NZ-ALLERGAN-2103145US

PATIENT
  Sex: Female

DRUGS (3)
  1. CYCLOPENTOLATE (CYCLOPENTOLATE HYDROCHLORIDE) [Suspect]
     Active Substance: CYCLOPENTOLATE HYDROCHLORIDE
     Indication: FOREIGN BODY IN EYE
     Dosage: 1 GTT, BID
     Dates: start: 20200806, end: 20200807
  2. PRED FORTE [Suspect]
     Active Substance: PREDNISOLONE ACETATE
     Indication: FOREIGN BODY IN EYE
     Dosage: UNK
     Dates: start: 20200804, end: 20200807
  3. CHLORAMPHENICOL [Concomitant]
     Active Substance: CHLORAMPHENICOL
     Indication: FOREIGN BODY IN EYE
     Dosage: 4 UNK, UNK
     Dates: start: 20200804, end: 20200807

REACTIONS (3)
  - Ocular hyperaemia [Not Recovered/Not Resolved]
  - Application site inflammation [Not Recovered/Not Resolved]
  - Intraocular pressure increased [Not Recovered/Not Resolved]

NARRATIVE: CASE EVENT DATE: 20200807
